FAERS Safety Report 21370442 (Version 3)
Quarter: 2022Q4

REPORT INFORMATION
  Report Type: Spontaneous
  Country: US (occurrence: US)
  Receive Date: 20220923
  Receipt Date: 20221221
  Transmission Date: 20230113
  Serious: Yes (Other)
  Sender: FDA-Public Use
  Company Number: US-Blueprint Medicines Corporation-SP-US-2022-002847

PATIENT
  Sex: Female

DRUGS (4)
  1. AYVAKIT [Suspect]
     Active Substance: AVAPRITINIB
     Indication: Malignant mast cell neoplasm
     Route: 048
     Dates: start: 20210824
  2. AYVAKIT [Suspect]
     Active Substance: AVAPRITINIB
     Route: 048
     Dates: start: 20210824
  3. AYVAKIT [Suspect]
     Active Substance: AVAPRITINIB
     Dosage: AYVAKIT 100 MG TAKE 1 TABLET BY MOUTH EVERY OTHER DAY, ALTERNATING WITH AYVAKIT 50 MG
     Route: 048
     Dates: start: 20210824
  4. AYVAKIT [Suspect]
     Active Substance: AVAPRITINIB
     Dosage: AYVAKIT 100 MG TAKE 1 TABLET BY MOUTH EVERY OTHER DAY, ALTERNATING WITH AYVAKIT 50 MG
     Route: 048
     Dates: start: 20210824

REACTIONS (5)
  - Clostridium difficile infection [Not Recovered/Not Resolved]
  - Large intestine infection [Not Recovered/Not Resolved]
  - Infection [Not Recovered/Not Resolved]
  - Blood alkaline phosphatase increased [Not Recovered/Not Resolved]
  - Off label use [Unknown]
